APPROVED DRUG PRODUCT: ZILEUTON
Active Ingredient: ZILEUTON
Strength: 600MG
Dosage Form/Route: TABLET, EXTENDED RELEASE;ORAL
Application: A211043 | Product #001
Applicant: TEVA PHARMACEUTICALS USA INC
Approved: May 3, 2022 | RLD: No | RS: No | Type: DISCN